FAERS Safety Report 5165629-4 (Version None)
Quarter: 2006Q4

REPORT INFORMATION
  Report Type: 
  Country: None (occurrence: None)
  Receive Date: 20061206
  Receipt Date: 20061011
  Transmission Date: 20070319
  Serious: No
  Sender: FDA-Public Use
  Company Number: US-BRISTOL-MYERS SQUIBB COMPANY-13539689

PATIENT
  Age: 46 Year
  Sex: Male

DRUGS (2)
  1. ARIPIPRAZOLE [Suspect]
     Dosage: 15 MG/DAY FROM 06-MAR-06 TO 24-MAR-06, INCREASED TO 30 MG ON 03/25/06-5/4/2006
     Dates: start: 20060306, end: 20060504
  2. FISH OIL [Concomitant]

REACTIONS (2)
  - BLOOD CHOLESTEROL INCREASED [None]
  - BLOOD TRIGLYCERIDES INCREASED [None]
